FAERS Safety Report 10303487 (Version 2)
Quarter: 2014Q3

REPORT INFORMATION
  Report Type: Spontaneous
  Country: DK (occurrence: SG)
  Receive Date: 20140714
  Receipt Date: 20140721
  Transmission Date: 20150326
  Serious: Yes (Hospitalization, Other)
  Sender: FDA-Public Use
  Company Number: DK-ELI_LILLY_AND_COMPANY-DK201407003313

PATIENT
  Age: 38 Year
  Sex: Female

DRUGS (7)
  1. QUETIAPINE [Suspect]
     Active Substance: QUETIAPINE
     Indication: PRODUCT USED FOR UNKNOWN INDICATION
     Dosage: 600 MG, QD
     Route: 065
  2. FLUPHENAZINE DECANOATE. [Suspect]
     Active Substance: FLUPHENAZINE DECANOATE
     Indication: PRODUCT USED FOR UNKNOWN INDICATION
     Dosage: 25 MG, MONTHLY (1/M)
     Route: 030
  3. VALPROATE [Interacting]
     Active Substance: VALPROATE SODIUM
     Indication: IRRITABILITY
     Dosage: 1 G, QD
     Route: 065
  4. FLUOXETINE HYDROCHLORIDE. [Suspect]
     Active Substance: FLUOXETINE HYDROCHLORIDE
     Indication: PRODUCT USED FOR UNKNOWN INDICATION
     Dosage: 40 MG, QD
     Route: 065
  5. VALPROATE [Interacting]
     Active Substance: VALPROATE SODIUM
     Indication: AGITATION
     Dosage: 1.5 G, QD
     Route: 065
  6. VALPROATE [Interacting]
     Active Substance: VALPROATE SODIUM
     Indication: AGGRESSION
  7. QUETIAPINE [Suspect]
     Active Substance: QUETIAPINE
     Dosage: 1500 MG, QD
     Route: 065

REACTIONS (3)
  - Drug interaction [Recovered/Resolved]
  - Aggression [Recovered/Resolved]
  - Hyperammonaemic encephalopathy [Recovered/Resolved]
